FAERS Safety Report 6593842-8 (Version None)
Quarter: 2010Q1

REPORT INFORMATION
  Report Type: 
  Country: None (occurrence: None)
  Receive Date: 20100219
  Receipt Date: 20100219
  Transmission Date: 20100710
  Serious: Yes (Hospitalization)
  Sender: FDA-Public Use
  Company Number: None

PATIENT
  Age: 62 Year
  Sex: Male
  Weight: 106 kg

DRUGS (2)
  1. MOXIFLOXACIN HCL [Suspect]
     Indication: CELLULITIS
     Dosage: 400 MG EVERY DAY PO
     Route: 048
     Dates: start: 20090331, end: 20090404
  2. METRONIDAZOLE [Suspect]
     Indication: CELLULITIS
     Dosage: 500 MG BID PO
     Route: 048
     Dates: start: 20090331, end: 20090404

REACTIONS (5)
  - ANGIOEDEMA [None]
  - DYSPHAGIA [None]
  - ERYTHEMA [None]
  - OEDEMA PERIPHERAL [None]
  - SWOLLEN TONGUE [None]
